FAERS Safety Report 10051480 (Version 1)
Quarter: 2014Q1

REPORT INFORMATION
  Report Type: Spontaneous
  Country: US (occurrence: None)
  Receive Date: 20140328
  Receipt Date: 20140328
  Transmission Date: 20141002
  Serious: Yes (Other)
  Sender: FDA-Public Use
  Company Number: 2014-US-003661

PATIENT
  Age: 11 Year
  Sex: Female
  Weight: 49.9 kg

DRUGS (4)
  1. XENAZINE [Suspect]
     Indication: TOURETTE^S DISORDER
     Route: 048
  2. XENAZINE [Suspect]
     Indication: TIC
     Route: 048
  3. FLUVOXAMINE MALEATE [Suspect]
  4. GEODON (ZIPRASIDONE HYDROCHLORIDE) [Concomitant]

REACTIONS (8)
  - Drooling [None]
  - Aphasia [None]
  - Chills [None]
  - Muscle rigidity [None]
  - Restlessness [None]
  - Off label use [None]
  - Hypotonia [None]
  - Unevaluable event [None]
